FAERS Safety Report 8082509-5 (Version None)
Quarter: 2012Q1

REPORT INFORMATION
  Report Type: 
  Country: None (occurrence: None)
  Receive Date: 20120127
  Receipt Date: 20110217
  Transmission Date: 20120608
  Serious: No
  Sender: FDA-Public Use
  Company Number: US-ABBOTT-11P-163-0706702-00

PATIENT
  Sex: Female
  Weight: 48.124 kg

DRUGS (3)
  1. PROZAC [Concomitant]
     Indication: ANXIETY
  2. ALDACTONE [Concomitant]
     Indication: ACNE
  3. HUMIRA [Suspect]
     Indication: CROHN'S DISEASE
     Dates: start: 20101201

REACTIONS (1)
  - ARTHRALGIA [None]
